FAERS Safety Report 14737789 (Version 5)
Quarter: 2018Q3

REPORT INFORMATION
  Report Type: Report from Study
  Country: FR (occurrence: FR)
  Receive Date: 20180409
  Receipt Date: 20180717
  Transmission Date: 20181010
  Serious: Yes (Death, Other)
  Sender: FDA-Public Use
  Company Number: FR-JAZZ-2018-FR-005425

PATIENT

DRUGS (2)
  1. DEFITELIO [Suspect]
     Active Substance: DEFIBROTIDE SODIUM
     Indication: PROPHYLAXIS
     Dosage: 25 MG/KG, QD
     Route: 042
     Dates: start: 20160718, end: 20160817
  2. DEFITELIO [Suspect]
     Active Substance: DEFIBROTIDE SODIUM
     Indication: VENOOCCLUSIVE DISEASE
     Dosage: 25 MG/KG, QD
     Route: 042
     Dates: start: 20160312, end: 20160415

REACTIONS (19)
  - Pseudomonas test positive [Unknown]
  - Sleep disorder [Unknown]
  - Iron overload [Unknown]
  - Pulmonary mass [Unknown]
  - Hepatitis B surface antibody positive [Unknown]
  - Cellulitis [Unknown]
  - Depression [Unknown]
  - Fluid overload [Unknown]
  - Lymphoma [Unknown]
  - Enterococcus test positive [Recovered/Resolved]
  - Anxiety [Unknown]
  - Tooth abscess [Unknown]
  - Hepatic steatosis [Unknown]
  - Cytomegalovirus test positive [Unknown]
  - Cystitis haemorrhagic [Unknown]
  - Adverse drug reaction [Unknown]
  - Dental caries [Unknown]
  - Respiratory failure [Fatal]
  - Cardio-respiratory arrest [Unknown]

NARRATIVE: CASE EVENT DATE: 20160610
